FAERS Safety Report 7369641-6 (Version None)
Quarter: 2011Q1

REPORT INFORMATION
  Report Type: 
  Country: None (occurrence: None)
  Receive Date: 20110323
  Receipt Date: 20110317
  Transmission Date: 20110831
  Serious: Yes (Other)
  Sender: FDA-Public Use
  Company Number: AU-PFIZER INC-2010116164

PATIENT
  Sex: Female

DRUGS (1)
  1. XALATAN [Suspect]
     Indication: GLAUCOMA
     Dosage: UNK

REACTIONS (11)
  - VISION BLURRED [None]
  - MALAISE [None]
  - DYSPNOEA [None]
  - CATARACT OPERATION [None]
  - DYSPHAGIA [None]
  - GINGIVITIS [None]
  - CONJUNCTIVITIS [None]
  - ANGINA PECTORIS [None]
  - ARTHRALGIA [None]
  - ANAEMIA MACROCYTIC [None]
  - SALIVARY HYPERSECRETION [None]
